FAERS Safety Report 18314273 (Version 9)
Quarter: 2025Q2

REPORT INFORMATION
  Report Type: Report from Study
  Country: US (occurrence: US)
  Receive Date: 20200925
  Receipt Date: 20250405
  Transmission Date: 20250717
  Serious: Yes (Death, Hospitalization, Other)
  Sender: TAKEDA
  Company Number: US-TAKEDA-2019TUS055314

PATIENT
  Age: 77 Year
  Sex: Female
  Weight: 63 kg

DRUGS (15)
  1. PONATINIB [Suspect]
     Active Substance: PONATINIB
     Indication: Chronic myeloid leukaemia
     Dosage: 15 MILLIGRAM, QD
     Dates: start: 20190621
  2. PONATINIB [Suspect]
     Active Substance: PONATINIB
     Dosage: 30 MILLIGRAM, QD
  3. PONATINIB [Suspect]
     Active Substance: PONATINIB
     Dosage: 15 MILLIGRAM, QD
  4. PONATINIB [Suspect]
     Active Substance: PONATINIB
  5. POTASSIUM CHLORIDE [Concomitant]
     Active Substance: POTASSIUM CHLORIDE
  6. APIXABAN [Concomitant]
     Active Substance: APIXABAN
  7. ATORVASTATIN [Concomitant]
     Active Substance: ATORVASTATIN
  8. CETIRIZINE [Concomitant]
     Active Substance: CETIRIZINE HYDROCHLORIDE
  9. CLOPIDOGREL [Concomitant]
     Active Substance: CLOPIDOGREL BISULFATE
  10. FAMOTIDINE [Concomitant]
     Active Substance: FAMOTIDINE
  11. NITROGLYCERIN [Concomitant]
     Active Substance: NITROGLYCERIN
  12. FENOFIBRATE [Concomitant]
     Active Substance: FENOFIBRATE
  13. FUROSEMIDE [Concomitant]
     Active Substance: FUROSEMIDE
  14. GABAPENTIN [Concomitant]
     Active Substance: GABAPENTIN
  15. LEVOTHYROXINE [Concomitant]
     Active Substance: LEVOTHYROXINE

REACTIONS (9)
  - Death [Fatal]
  - Complication associated with device [Unknown]
  - Coronary artery stenosis [Unknown]
  - Palpitations [Recovered/Resolved]
  - Atrial fibrillation [Unknown]
  - Product dose omission issue [Unknown]
  - Dry mouth [Not Recovered/Not Resolved]
  - Dry skin [Not Recovered/Not Resolved]
  - Rash [Recovered/Resolved]

NARRATIVE: CASE EVENT DATE: 20200923
